FAERS Safety Report 19442922 (Version 1)
Quarter: 2021Q2

REPORT INFORMATION
  Report Type: Spontaneous
  Country: GB (occurrence: GB)
  Receive Date: 20210621
  Receipt Date: 20210621
  Transmission Date: 20210717
  Serious: Yes (Death, Hospitalization)
  Sender: FDA-Public Use
  Company Number: GB-TEVA-2021-GB-1923673

PATIENT
  Age: 88 Year
  Sex: Female

DRUGS (1)
  1. PREDNISOLONE. [Suspect]
     Active Substance: PREDNISOLONE
     Indication: MYALGIA
     Dosage: 15 MG IN SEP?2020, DOWN TO 7MG BY FEB?2021; ;
     Route: 065
     Dates: start: 202009

REACTIONS (6)
  - Head discomfort [Fatal]
  - Memory impairment [Fatal]
  - Conversion disorder [Fatal]
  - General physical health deterioration [Fatal]
  - Confusional state [Fatal]
  - Agitation [Fatal]

NARRATIVE: CASE EVENT DATE: 20210302
